FAERS Safety Report 16611108 (Version 1)
Quarter: 2019Q3

REPORT INFORMATION
  Report Type: Spontaneous
  Country: US (occurrence: US)
  Receive Date: 20190722
  Receipt Date: 20190722
  Transmission Date: 20191004
  Serious: No
  Sender: FDA-Public Use
  Company Number: US-SA-2019SA190600

PATIENT
  Sex: Female

DRUGS (2)
  1. KEVZARA [Suspect]
     Active Substance: SARILUMAB
  2. ENBREL [Concomitant]
     Active Substance: ETANERCEPT

REACTIONS (2)
  - Pain [Unknown]
  - Drug ineffective [Unknown]
